FAERS Safety Report 17500184 (Version 3)
Quarter: 2021Q4

REPORT INFORMATION
  Report Type: Spontaneous
  Country: BG (occurrence: BG)
  Receive Date: 20200305
  Receipt Date: 20211001
  Transmission Date: 20220304
  Serious: Yes (Hospitalization, Other)
  Sender: FDA-Public Use
  Company Number: BG-TEVA-2020-BG-1193235

PATIENT
  Age: 74 Year
  Sex: Female

DRUGS (4)
  1. OLMESARTAN [Suspect]
     Active Substance: OLMESARTAN
     Indication: Hypertension
     Dosage: 10 MILLIGRAM DAILY; ACCORDING TO THE PATIENT^S DATA INITIAL ONSET HAD BEEN APPROXIMATELY 2-3 YEARS
     Route: 065
     Dates: start: 2015, end: 2017
  2. OLMESARTAN [Suspect]
     Active Substance: OLMESARTAN
     Dosage: 10 MG X 1/DAILY FROM JULY 2017 (ONSET DATE OF INITIAL THERAPY IS UNKNOWN)
     Route: 065
     Dates: start: 201707
  3. VALSARTAN [Suspect]
     Active Substance: VALSARTAN
     Indication: Hypertension
     Dosage: 320 MILLIGRAM DAILY;
     Route: 065
     Dates: start: 201707, end: 201809
  4. AMLODIPINE BESYLATE\VALSARTAN [Suspect]
     Active Substance: AMLODIPINE BESYLATE\VALSARTAN
     Indication: Hypertension
     Dosage: 2 DOSAGE FORMS DAILY; 1 DF = AMLODIPINE 5MG + VALSARTAN 160MG
     Route: 065
     Dates: start: 201810, end: 2019

REACTIONS (2)
  - Malignant melanoma [Not Recovered/Not Resolved]
  - Squamous cell carcinoma of skin [Not Recovered/Not Resolved]
